FAERS Safety Report 25352425 (Version 1)
Quarter: 2025Q2

REPORT INFORMATION
  Report Type: Spontaneous
  Country: ES (occurrence: ES)
  Receive Date: 20250523
  Receipt Date: 20250523
  Transmission Date: 20250716
  Serious: Yes (Hospitalization)
  Sender: MYLAN
  Company Number: ES-MYLANLABS-2025M1042937

PATIENT
  Age: 66 Year
  Sex: Male

DRUGS (36)
  1. AMIODARONE [Suspect]
     Active Substance: AMIODARONE
     Indication: Atrial fibrillation
  2. AMIODARONE [Suspect]
     Active Substance: AMIODARONE
     Route: 065
  3. AMIODARONE [Suspect]
     Active Substance: AMIODARONE
     Route: 065
  4. AMIODARONE [Suspect]
     Active Substance: AMIODARONE
  5. PREDNISONE [Suspect]
     Active Substance: PREDNISONE
     Indication: Hyperthyroidism
  6. PREDNISONE [Suspect]
     Active Substance: PREDNISONE
  7. PREDNISONE [Suspect]
     Active Substance: PREDNISONE
     Route: 065
  8. PREDNISONE [Suspect]
     Active Substance: PREDNISONE
     Route: 065
  9. PREDNISONE [Suspect]
     Active Substance: PREDNISONE
     Dosage: 50 MILLIGRAM, QD
  10. PREDNISONE [Suspect]
     Active Substance: PREDNISONE
     Dosage: 50 MILLIGRAM, QD
  11. PREDNISONE [Suspect]
     Active Substance: PREDNISONE
     Dosage: 50 MILLIGRAM, QD
     Route: 065
  12. PREDNISONE [Suspect]
     Active Substance: PREDNISONE
     Dosage: 50 MILLIGRAM, QD
     Route: 065
  13. METHIMAZOLE [Suspect]
     Active Substance: METHIMAZOLE
     Indication: Hyperthyroidism
  14. METHIMAZOLE [Suspect]
     Active Substance: METHIMAZOLE
  15. METHIMAZOLE [Suspect]
     Active Substance: METHIMAZOLE
     Route: 065
  16. METHIMAZOLE [Suspect]
     Active Substance: METHIMAZOLE
     Route: 065
  17. METHIMAZOLE [Suspect]
     Active Substance: METHIMAZOLE
     Dosage: 60 MILLIGRAM, QD
  18. METHIMAZOLE [Suspect]
     Active Substance: METHIMAZOLE
     Dosage: 60 MILLIGRAM, QD
  19. METHIMAZOLE [Suspect]
     Active Substance: METHIMAZOLE
     Dosage: 60 MILLIGRAM, QD
     Route: 065
  20. METHIMAZOLE [Suspect]
     Active Substance: METHIMAZOLE
     Dosage: 60 MILLIGRAM, QD
     Route: 065
  21. CHOLESTYRAMINE [Suspect]
     Active Substance: CHOLESTYRAMINE
     Indication: Hyperthyroidism
  22. CHOLESTYRAMINE [Suspect]
     Active Substance: CHOLESTYRAMINE
     Route: 065
  23. CHOLESTYRAMINE [Suspect]
     Active Substance: CHOLESTYRAMINE
     Route: 065
  24. CHOLESTYRAMINE [Suspect]
     Active Substance: CHOLESTYRAMINE
  25. CARVEDILOL [Suspect]
     Active Substance: CARVEDILOL
     Indication: Hyperthyroidism
     Dosage: 50 MILLIGRAM, BID
  26. CARVEDILOL [Suspect]
     Active Substance: CARVEDILOL
     Dosage: 50 MILLIGRAM, BID
     Route: 065
  27. CARVEDILOL [Suspect]
     Active Substance: CARVEDILOL
     Dosage: 50 MILLIGRAM, BID
     Route: 065
  28. CARVEDILOL [Suspect]
     Active Substance: CARVEDILOL
     Dosage: 50 MILLIGRAM, BID
  29. ESMOLOL [Suspect]
     Active Substance: ESMOLOL HYDROCHLORIDE
     Indication: Hyperthyroidism
     Dosage: 200 MICROGRAM/KILOGRAM, QMINUTE (CONTINUOUS INFUSION)
  30. ESMOLOL [Suspect]
     Active Substance: ESMOLOL HYDROCHLORIDE
     Indication: Ventricular tachycardia
     Dosage: 200 MICROGRAM/KILOGRAM, QMINUTE (CONTINUOUS INFUSION)
     Route: 042
  31. ESMOLOL [Suspect]
     Active Substance: ESMOLOL HYDROCHLORIDE
     Dosage: 200 MICROGRAM/KILOGRAM, QMINUTE (CONTINUOUS INFUSION)
     Route: 042
  32. ESMOLOL [Suspect]
     Active Substance: ESMOLOL HYDROCHLORIDE
     Dosage: 200 MICROGRAM/KILOGRAM, QMINUTE (CONTINUOUS INFUSION)
  33. EDOXABAN [Concomitant]
     Active Substance: EDOXABAN
     Indication: Anticoagulant therapy
  34. EDOXABAN [Concomitant]
     Active Substance: EDOXABAN
     Route: 048
  35. EDOXABAN [Concomitant]
     Active Substance: EDOXABAN
     Route: 048
  36. EDOXABAN [Concomitant]
     Active Substance: EDOXABAN

REACTIONS (2)
  - Hyperthyroidism [Recovered/Resolved]
  - Drug ineffective [Unknown]
